FAERS Safety Report 14512093 (Version 1)
Quarter: 2018Q1

REPORT INFORMATION
  Report Type: Spontaneous
  Country: US (occurrence: US)
  Receive Date: 20180209
  Receipt Date: 20180209
  Transmission Date: 20180509
  Serious: Yes (Other)
  Sender: FDA-Public Use
  Company Number: US-TEVA-2018-US-855371

PATIENT
  Age: 81 Year
  Sex: Female

DRUGS (2)
  1. LIDOCAINE. [Suspect]
     Active Substance: LIDOCAINE
     Indication: BACK PAIN
     Route: 062
  2. NORTHERA [Suspect]
     Active Substance: DROXIDOPA
     Indication: ORTHOSTATIC HYPOTENSION
     Dosage: 1800 MILLIGRAM DAILY;
     Route: 048
     Dates: start: 20170413

REACTIONS (3)
  - Fall [Unknown]
  - Back pain [Unknown]
  - Vertebroplasty [Unknown]

NARRATIVE: CASE EVENT DATE: 20170424
